FAERS Safety Report 6996596-6 (Version None)
Quarter: 2010Q3

REPORT INFORMATION
  Report Type: 
  Country: None (occurrence: None)
  Receive Date: 20100918
  Receipt Date: 20090518
  Transmission Date: 20110219
  Serious: No
  Sender: FDA-Public Use
  Company Number: US-WYE-H09397309

PATIENT
  Sex: Female

DRUGS (4)
  1. EFFEXOR XR [Suspect]
     Indication: OBSESSIVE-COMPULSIVE DISORDER
     Route: 048
     Dates: start: 20090414, end: 20090101
  2. EFFEXOR XR [Suspect]
     Indication: IRRITABLE BOWEL SYNDROME
     Route: 048
     Dates: start: 20090101, end: 20090101
  3. EFFEXOR XR [Suspect]
     Route: 048
     Dates: start: 20090101
  4. VITAMINS [Concomitant]

REACTIONS (4)
  - AGITATION [None]
  - HEADACHE [None]
  - INSOMNIA [None]
  - UNEVALUABLE EVENT [None]
